FAERS Safety Report 5510622-2 (Version None)
Quarter: 2007Q4

REPORT INFORMATION
  Report Type: 
  Country: None (occurrence: None)
  Receive Date: 20071108
  Receipt Date: 20071105
  Transmission Date: 20080405
  Serious: Yes (Life-Threatening, Hospitalization)
  Sender: FDA-Public Use
  Company Number: DE-BOEHRINGER INGELHEIM PHARMACEUTICALS, INC.-2007-DE-06262DE

PATIENT
  Sex: Female
  Weight: 70 kg

DRUGS (3)
  1. MICARDIS [Suspect]
     Indication: ESSENTIAL HYPERTENSION
     Route: 048
     Dates: start: 20070312, end: 20070629
  2. CONTRACEPTIVUM [Suspect]
  3. ASPIRIN [Suspect]

REACTIONS (23)
  - ABDOMINAL DISCOMFORT [None]
  - AREFLEXIA [None]
  - BLOOD LACTIC ACID INCREASED [None]
  - CATHETER SEPSIS [None]
  - CHOLESTASIS [None]
  - COAGULOPATHY [None]
  - FAECAL INCONTINENCE [None]
  - GAIT DISTURBANCE [None]
  - HAEMODYNAMIC INSTABILITY [None]
  - HAEMORRHAGE [None]
  - HEPATIC FAILURE [None]
  - HEPATIC FUNCTION ABNORMAL [None]
  - HEPATIC RUPTURE [None]
  - HEPATOMEGALY [None]
  - HYPOPHONESIS [None]
  - HYPOREFLEXIA [None]
  - LUNG INFECTION PSEUDOMONAL [None]
  - NEUROLOGICAL EXAMINATION ABNORMAL [None]
  - PARESIS [None]
  - PELIOSIS HEPATIS [None]
  - QUADRIPLEGIA [None]
  - URINARY INCONTINENCE [None]
  - WEIGHT DECREASED [None]
